FAERS Safety Report 9774962 (Version 2)
Quarter: 2013Q4

REPORT INFORMATION
  Report Type: Spontaneous
  Country: US (occurrence: None)
  Receive Date: 20131218
  Receipt Date: 20131224
  Transmission Date: 20140711
  Serious: Yes (Hospitalization)
  Sender: FDA-Public Use
  Company Number: AUR-APL-2013-09643

PATIENT
  Age: 58 Year
  Sex: Male
  Weight: 90.7 kg

DRUGS (4)
  1. LISINOPRIL (LISINOPRIL) [Suspect]
     Indication: HYPERTENSION
  2. NORVASC [Suspect]
     Indication: HYPERTENSION
     Dosage: 5MG OR 10MG DAILY, UNKNOWN
     Dates: start: 2006, end: 200602
  3. ALTACE [Suspect]
     Indication: HYPERTENSION
     Dates: start: 2006
  4. CARDURA (DOXAZOSIN MESILATE) [Suspect]
     Indication: HYPERTENSION

REACTIONS (4)
  - Malaise [None]
  - Drug ineffective [None]
  - Gastrointestinal disorder [None]
  - Incorrect drug administration duration [None]
